FAERS Safety Report 7204654-6 (Version None)
Quarter: 2010Q4

REPORT INFORMATION
  Report Type: 
  Country: None (occurrence: None)
  Receive Date: 20101230
  Receipt Date: 20101213
  Transmission Date: 20110411
  Serious: No
  Sender: FDA-Public Use
  Company Number: US-PFIZER INC-2010173035

PATIENT
  Age: 57 Year
  Sex: Female
  Weight: 81.633 kg

DRUGS (1)
  1. ADVIL CONGESTION RELIEF [Suspect]
     Dosage: 1 TAB, EVERY 4 HRS, TOTAL OF 3
     Route: 048
     Dates: start: 20101201, end: 20101209

REACTIONS (1)
  - DRUG INEFFECTIVE [None]
